FAERS Safety Report 9206834 (Version 1)
Quarter: 2013Q1

REPORT INFORMATION
  Report Type: Spontaneous
  Country: US (occurrence: None)
  Receive Date: 20120713
  Receipt Date: 20120713
  Transmission Date: 20140127
  Serious: Yes (Other)
  Sender: FDA-Public Use
  Company Number: PHEH2012US009370

PATIENT
  Sex: Female

DRUGS (3)
  1. VALTURNA [Suspect]
     Dosage: (150/160 MG)
  2. HYDROCHLOROTHIAZIDE (HYDROCHLOROTHIAZIDE) [Concomitant]
  3. CLONIDINE (CLONIDINE) [Concomitant]

REACTIONS (7)
  - Blood pressure increased [None]
  - Mood swings [None]
  - Somnolence [None]
  - Dizziness [None]
  - Nausea [None]
  - Headache [None]
  - Fatigue [None]
